FAERS Safety Report 7291384-8 (Version None)
Quarter: 2011Q1

REPORT INFORMATION
  Report Type: 
  Country: None (occurrence: None)
  Receive Date: 20110214
  Receipt Date: 20110204
  Transmission Date: 20110831
  Serious: Yes (Other)
  Sender: FDA-Public Use
  Company Number: B0698027A

PATIENT
  Age: 51 Year
  Sex: Male

DRUGS (7)
  1. VENTOLIN [Concomitant]
     Route: 065
  2. METFORMIN HCL [Concomitant]
     Route: 065
  3. LIPANTHYL [Concomitant]
     Route: 065
  4. ZELITREX [Suspect]
     Dosage: 500MG SIX TIMES PER DAY
     Route: 048
     Dates: start: 20110115, end: 20110120
  5. SINGULAIR [Concomitant]
     Route: 065
  6. SPIRIVA [Concomitant]
     Route: 065
  7. DAFLON [Concomitant]
     Route: 065

REACTIONS (4)
  - PURPURA [None]
  - PETECHIAE [None]
  - THROMBOCYTOPENIA [None]
  - EPISTAXIS [None]
